FAERS Safety Report 12445019 (Version 2)
Quarter: 2016Q2

REPORT INFORMATION
  Report Type: Spontaneous
  Country: US (occurrence: US)
  Receive Date: 20160607
  Receipt Date: 20160609
  Transmission Date: 20160815
  Serious: No
  Sender: FDA-Public Use
  Company Number: PHEH2016US013989

PATIENT
  Sex: Female

DRUGS (1)
  1. ZYKADIA [Suspect]
     Active Substance: CERITINIB
     Indication: LUNG NEOPLASM MALIGNANT
     Dosage: 600 MG, QD
     Route: 048
     Dates: start: 20151119

REACTIONS (6)
  - Nausea [Unknown]
  - Dyspepsia [Unknown]
  - Nerve injury [Unknown]
  - Vomiting [Unknown]
  - Diarrhoea [Unknown]
  - Pain [Unknown]
